FAERS Safety Report 10153382 (Version 1)
Quarter: 2014Q2

REPORT INFORMATION
  Report Type: Spontaneous
  Country: US (occurrence: US)
  Receive Date: 20140505
  Receipt Date: 20140505
  Transmission Date: 20141212
  Serious: No
  Sender: FDA-Public Use
  Company Number: US-ASTRAZENECA-2013SE82670

PATIENT
  Age: 89 Year
  Sex: Female
  Weight: 73.5 kg

DRUGS (6)
  1. PRILOSEC [Suspect]
     Dosage: BRAND PRILOSEC
     Route: 048
  2. PRILOSEC [Suspect]
     Route: 048
  3. LEVOTHYROID [Concomitant]
     Indication: THYROID DISORDER
  4. ASPIRIN [Concomitant]
     Indication: PROPHYLAXIS
  5. LEVASTATIN [Concomitant]
     Indication: PROPHYLAXIS
  6. VITAMIN B12 [Concomitant]

REACTIONS (6)
  - Weight decreased [Unknown]
  - Heart rate increased [Unknown]
  - Abdominal pain upper [Not Recovered/Not Resolved]
  - Dyspepsia [Not Recovered/Not Resolved]
  - Flatulence [Unknown]
  - Dizziness [Unknown]
